FAERS Safety Report 14066673 (Version 1)
Quarter: 2017Q4

REPORT INFORMATION
  Report Type: Spontaneous
  Country: US (occurrence: US)
  Receive Date: 20171009
  Receipt Date: 20171009
  Transmission Date: 20180321
  Serious: Yes (Hospitalization)
  Sender: FDA-Public Use
  Company Number: US-TEVA-346345USA

PATIENT
  Age: 84 Year
  Sex: Female

DRUGS (5)
  1. MULTIVITAMIN [Interacting]
     Active Substance: VITAMINS
  2. TRAMADOL. [Interacting]
     Active Substance: TRAMADOL
  3. CARVEDILOL. [Suspect]
     Active Substance: CARVEDILOL
     Dosage: USED BOTH 6.25 MG AND 12.5 MG
  4. COLACE [Interacting]
     Active Substance: DOCUSATE SODIUM
  5. OMEPRAZOLE. [Interacting]
     Active Substance: OMEPRAZOLE

REACTIONS (8)
  - Drug interaction [Unknown]
  - Dry mouth [Unknown]
  - Nausea [Unknown]
  - Vomiting [Unknown]
  - Blood pressure increased [Unknown]
  - Fatigue [Unknown]
  - Abdominal pain [Unknown]
  - Oesophageal operation [Unknown]
